FAERS Safety Report 6975458-4 (Version None)
Quarter: 2010Q3

REPORT INFORMATION
  Report Type: 
  Country: None (occurrence: None)
  Receive Date: 20100910
  Receipt Date: 20090320
  Transmission Date: 20110219
  Serious: No
  Sender: FDA-Public Use
  Company Number: US-WYE-H08660009

PATIENT
  Sex: Female

DRUGS (2)
  1. PRISTIQ [Suspect]
     Indication: DEPRESSION
     Route: 048
     Dates: start: 20090318
  2. XANAX [Concomitant]
     Indication: ANXIETY
     Dosage: UNKNOWN
     Dates: start: 20090318

REACTIONS (9)
  - CHEST PAIN [None]
  - HYPERSENSITIVITY [None]
  - MIDDLE INSOMNIA [None]
  - PANIC ATTACK [None]
  - PRESYNCOPE [None]
  - TACHYPHRENIA [None]
  - THROAT TIGHTNESS [None]
  - TREMOR [None]
  - WRONG TECHNIQUE IN DRUG USAGE PROCESS [None]
